FAERS Safety Report 11909264 (Version 1)
Quarter: 2016Q1

REPORT INFORMATION
  Report Type: Report from Study
  Country: US (occurrence: US)
  Receive Date: 20160112
  Receipt Date: 20160112
  Transmission Date: 20160526
  Serious: No
  Sender: FDA-Public Use
  Company Number: US-AMGEN-USASL2016000802

PATIENT
  Age: 60 Year
  Sex: Female

DRUGS (2)
  1. ENBREL [Suspect]
     Active Substance: ETANERCEPT
     Indication: RHEUMATOID ARTHRITIS
     Dosage: UNK UNK, EVERY 7 DAYS
     Route: 065
     Dates: start: 200711
  2. ENBREL [Suspect]
     Active Substance: ETANERCEPT
     Dosage: UNK, EVERY 12 DAYS
     Route: 065
     Dates: start: 2013

REACTIONS (6)
  - Influenza like illness [Unknown]
  - Injection site pain [Unknown]
  - Discomfort [Unknown]
  - Headache [Unknown]
  - Musculoskeletal stiffness [Unknown]
  - Pain [Unknown]
